FAERS Safety Report 6892386-3 (Version None)
Quarter: 2010Q3

REPORT INFORMATION
  Report Type: 
  Country: None (occurrence: None)
  Receive Date: 20100731
  Receipt Date: 20080619
  Transmission Date: 20110219
  Serious: No
  Sender: FDA-Public Use
  Company Number: US-PFIZER INC-2008038945

PATIENT
  Sex: Female
  Weight: 68.04 kg

DRUGS (9)
  1. NEURONTIN [Suspect]
     Indication: BACK DISORDER
  2. FLEXERIL [Concomitant]
  3. MORPHINE [Concomitant]
  4. OXYCODONE HCL [Concomitant]
  5. VALIUM [Concomitant]
  6. ZOLOFT [Concomitant]
  7. ALL OTHER THERAPEUTIC PRODUCTS [Concomitant]
  8. ZANTAC [Concomitant]
  9. AMBIEN [Concomitant]

REACTIONS (2)
  - CONFUSIONAL STATE [None]
  - DISORIENTATION [None]
